FAERS Safety Report 4584216-X (Version None)
Quarter: 2005Q1

REPORT INFORMATION
  Report Type: 
  Country: None (occurrence: None)
  Receive Date: 20050216
  Receipt Date: 20050210
  Transmission Date: 20050727
  Serious: Yes (Other)
  Sender: FDA-Public Use
  Company Number: FR-GLAXOSMITHKLINE-B0371096A

PATIENT
  Sex: Male

DRUGS (1)
  1. VENTOLIN [Suspect]
     Dosage: 200PUFF PER DAY
     Route: 055
     Dates: start: 20050209, end: 20050209

REACTIONS (2)
  - EUPHORIC MOOD [None]
  - INTENTIONAL MISUSE [None]
